FAERS Safety Report 4445966-9 (Version None)
Quarter: 2004Q3

REPORT INFORMATION
  Report Type: 
  Country: None (occurrence: None)
  Receive Date: 20040910
  Receipt Date: 20040902
  Transmission Date: 20050211
  Serious: Yes (Disabling)
  Sender: FDA-Public Use
  Company Number: US-MERCK-0409USA00362

PATIENT
  Age: 57 Year
  Sex: Male

DRUGS (8)
  1. [THERAPY UNSPECIFIED] [Concomitant]
     Route: 065
  2. CELEBREX [Concomitant]
     Route: 065
  3. FOLTX [Concomitant]
     Route: 065
  4. LASIX [Concomitant]
     Route: 065
  5. ZESTRIL [Concomitant]
     Route: 065
  6. GLUCOPHAGE [Concomitant]
     Route: 065
  7. PINDOLOL [Concomitant]
     Route: 065
  8. ZOCOR [Suspect]
     Indication: BLOOD CHOLESTEROL INCREASED
     Route: 048
     Dates: start: 20020901, end: 20040818

REACTIONS (2)
  - BALANCE DISORDER [None]
  - PARAESTHESIA [None]
